FAERS Safety Report 5386499-5 (Version None)
Quarter: 2007Q3

REPORT INFORMATION
  Report Type: 
  Country: None (occurrence: None)
  Receive Date: 20070710
  Receipt Date: 20070702
  Transmission Date: 20080115
  Serious: Yes (Hospitalization, Other)
  Sender: FDA-Public Use
  Company Number: 163-21880-07070139

PATIENT
  Age: 53 Year
  Sex: Male

DRUGS (13)
  1. REVLIMID [Suspect]
     Indication: MULTIPLE MYELOMA
     Dosage: 25 MG, 1 IN 1 D, ORAL
     Route: 048
     Dates: start: 20061218
  2. DEXAMETHASONE TAB [Suspect]
     Indication: MULTIPLE MYELOMA
     Dates: start: 20061218
  3. ERYTHROPOIETIN (ERYTHROPOIETIN) [Concomitant]
  4. CELEXA [Concomitant]
  5. COLACE (DOCUSATE SODIUM) [Concomitant]
  6. FERROUS SULFATE TAB [Concomitant]
  7. FOLIC ACID [Concomitant]
  8. NEURONTIN [Concomitant]
  9. MAGNESIUM OXIDE (MAGNESIUM OXIDE) [Concomitant]
  10. PROTONIX [Concomitant]
  11. SENOKOT [Concomitant]
  12. ASCORBIC ACID [Concomitant]
  13. ZINC (ZINC) [Concomitant]

REACTIONS (4)
  - MUSCULAR WEAKNESS [None]
  - PAIN [None]
  - PARAPLEGIA [None]
  - SPINAL CORD COMPRESSION [None]
